FAERS Safety Report 4973400-9 (Version None)
Quarter: 2006Q2

REPORT INFORMATION
  Report Type: 
  Country: None (occurrence: None)
  Receive Date: 20060414
  Receipt Date: 20060106
  Transmission Date: 20061013
  Serious: Yes (Hospitalization)
  Sender: FDA-Public Use
  Company Number: US-MERCK-0601USA01021

PATIENT
  Age: 56 Year
  Sex: Male
  Weight: 130 kg

DRUGS (4)
  1. VIOXX [Suspect]
     Indication: ARTHRITIS
     Route: 048
     Dates: start: 20000405, end: 20040919
  2. VIOXX [Suspect]
     Indication: CROHN'S DISEASE
     Route: 048
     Dates: start: 20000405, end: 20040919
  3. VIOXX [Suspect]
     Route: 048
     Dates: start: 20000405, end: 20040919
  4. VIOXX [Suspect]
     Route: 048
     Dates: start: 20000405, end: 20040919

REACTIONS (3)
  - CEREBROVASCULAR ACCIDENT [None]
  - CORONARY ARTERY DISEASE [None]
  - MYOCARDIAL INFARCTION [None]
